FAERS Safety Report 18452853 (Version 4)
Quarter: 2021Q1

REPORT INFORMATION
  Report Type: Spontaneous
  Country: US (occurrence: US)
  Receive Date: 20201102
  Receipt Date: 20210111
  Transmission Date: 20210419
  Serious: Yes (Other)
  Sender: FDA-Public Use
  Company Number: US-BAYER-2020-232938

PATIENT
  Age: 38 Year
  Sex: Female

DRUGS (3)
  1. JIVI [Suspect]
     Active Substance: DAMOCTOCOG ALFA PEGOL
     Dosage: UNK
  2. JIVI [Suspect]
     Active Substance: DAMOCTOCOG ALFA PEGOL
     Dosage: 2600 UNITS, FOR EVENT TREATMENT
     Dates: start: 20201024, end: 20201024
  3. JIVI [Suspect]
     Active Substance: DAMOCTOCOG ALFA PEGOL
     Dosage: USED AN EXTRA DOSE OF JIVI FOR A LEFT KNEE BLEED
     Dates: start: 20210101

REACTIONS (4)
  - Contusion [None]
  - Post-traumatic pain [None]
  - Haemarthrosis [Recovered/Resolved]
  - Peripheral swelling [None]

NARRATIVE: CASE EVENT DATE: 20201024
